FAERS Safety Report 8963441 (Version 1)
Quarter: 2012Q4

REPORT INFORMATION
  Report Type: 
  Country: US (occurrence: US)
  Receive Date: 20121214
  Receipt Date: 20121214
  Transmission Date: 20130627
  Serious: Yes (Other)
  Sender: FDA-Public Use
  Company Number: US-JNJFOC-20121114364

PATIENT
  Age: 53 None
  Sex: Female
  Weight: 83.92 kg

DRUGS (9)
  1. UNSPECIFIED FENTANYL TRANSDERMAL SYSTEM [Suspect]
     Indication: BACK PAIN
     Route: 062
     Dates: start: 2010
  2. UNSPECIFIED FENTANYL TRANSDERMAL SYSTEM [Suspect]
     Indication: BACK PAIN
     Route: 062
  3. UNSPECIFIED FENTANYL TRANSDERMAL SYSTEM [Suspect]
     Indication: BACK PAIN
     Route: 062
     Dates: end: 201203
  4. SANDOZ FENTANYL TRANSDERMAL SYSTEM [Suspect]
     Indication: BACK PAIN
     Route: 062
     Dates: start: 20121120
  5. SOMA [Concomitant]
     Indication: MUSCLE SPASMS
     Route: 048
     Dates: start: 1980
  6. VALIUM [Concomitant]
     Indication: SLEEP DISORDER
     Route: 048
     Dates: start: 1980
  7. VALIUM [Concomitant]
     Indication: NERVOUSNESS
     Route: 048
     Dates: start: 1980
  8. MORPHINE [Concomitant]
     Indication: PAIN
     Dosage: 30 mg 2 tablets
     Route: 048
     Dates: start: 1980
  9. REGLAN TABLETS [Concomitant]
     Indication: DYSPEPSIA
     Route: 048
     Dates: start: 1984

REACTIONS (13)
  - Burns second degree [Unknown]
  - Panic attack [Unknown]
  - Product packaging issue [Unknown]
  - Pain [Unknown]
  - Product quality issue [Unknown]
  - Application site pruritus [Not Recovered/Not Resolved]
  - Application site burn [Not Recovered/Not Resolved]
  - Product quality issue [Unknown]
  - Insomnia [Unknown]
  - Application site erythema [Not Recovered/Not Resolved]
  - Application site swelling [Not Recovered/Not Resolved]
  - Product quality issue [Unknown]
  - Device leakage [Unknown]
